FAERS Safety Report 4345262-4 (Version None)
Quarter: 2004Q2

REPORT INFORMATION
  Report Type: 
  Country: None (occurrence: None)
  Receive Date: 20040423
  Receipt Date: 20040412
  Transmission Date: 20050107
  Serious: Yes (Hospitalization, Other)
  Sender: FDA-Public Use
  Company Number: PHEH2004US04236

PATIENT
  Age: 71 Year
  Sex: Female
  Weight: 124 kg

DRUGS (5)
  1. GLEEVEC [Suspect]
     Indication: CHRONIC MYELOID LEUKAEMIA
     Dosage: 300 MG, QD
     Route: 048
     Dates: start: 20010420
  2. PRILOSEC [Concomitant]
     Route: 048
  3. LOPRESSOR [Concomitant]
     Route: 048
  4. PROZAC [Concomitant]
     Route: 048
  5. IRON [Concomitant]
     Route: 048

REACTIONS (4)
  - CARDIAC DISORDER [None]
  - CORONARY ARTERY DISEASE [None]
  - EJECTION FRACTION DECREASED [None]
  - VENTRICULAR HYPOKINESIA [None]
